FAERS Safety Report 7472985-0 (Version None)
Quarter: 2011Q2

REPORT INFORMATION
  Report Type: 
  Country: None (occurrence: None)
  Receive Date: 20110511
  Receipt Date: 20110429
  Transmission Date: 20111010
  Serious: Yes (Other)
  Sender: FDA-Public Use
  Company Number: PHHY2011IE36644

PATIENT
  Sex: Male
  Weight: 77 kg

DRUGS (8)
  1. NEBIVOLOL HCL [Concomitant]
     Indication: BLOOD PRESSURE INCREASED
     Dosage: 10 MG, UNK
     Dates: start: 20080128
  2. ASPIRIN [Concomitant]
     Indication: CARDIOVASCULAR DISORDER
     Dosage: 75 MG, UNK
     Dates: start: 20061106
  3. BONIVA [Concomitant]
     Indication: BONE DISORDER
     Dosage: 150 MG, UNK
     Dates: start: 20080508
  4. TEKTURNA [Suspect]
     Indication: BLOOD PRESSURE INCREASED
     Dosage: 150 MG, UNK
     Route: 048
     Dates: start: 20110329, end: 20110407
  5. ISTIN [Concomitant]
     Indication: BLOOD PRESSURE INCREASED
     Dosage: 10 MG, UNK
     Dates: start: 20081229
  6. LOSARTAN POTASSIUM AND HYDROCHLOROTHIAZIDE [Concomitant]
     Indication: BLOOD PRESSURE INCREASED
     Dosage: UNK
     Dates: start: 20110228
  7. LIPITOR [Concomitant]
     Indication: CARDIOVASCULAR DISORDER
     Dosage: 20 MG, UNK
     Dates: start: 20090604
  8. DECAPEPTYL [Concomitant]
     Indication: PROSTATE CANCER
     Dosage: 11.25 MG, UNK
     Dates: start: 20101217

REACTIONS (2)
  - NAUSEA [None]
  - DIZZINESS [None]
